FAERS Safety Report 19662179 (Version 2)
Quarter: 2021Q4

REPORT INFORMATION
  Report Type: Spontaneous
  Country: US (occurrence: US)
  Receive Date: 20210805
  Receipt Date: 20211210
  Transmission Date: 20220303
  Serious: Yes (Other)
  Sender: FDA-Public Use
  Company Number: US-GILEAD-2021-0542458

PATIENT
  Age: 59 Year
  Sex: Male

DRUGS (101)
  1. VIREAD [Suspect]
     Active Substance: TENOFOVIR DISOPROXIL FUMARATE
     Indication: Hepatitis B
     Dosage: UNK
     Route: 048
     Dates: start: 20100121, end: 20160625
  2. ACYCLOVIR [Concomitant]
     Active Substance: ACYCLOVIR
  3. ADVAIR HFA [Concomitant]
     Active Substance: FLUTICASONE PROPIONATE\SALMETEROL XINAFOATE
  4. ALBUTEROL [Concomitant]
     Active Substance: ALBUTEROL
  5. AMITRIPTYLINE [Concomitant]
     Active Substance: AMITRIPTYLINE
  6. AMLODIPINE [Concomitant]
     Active Substance: AMLODIPINE BESYLATE
  7. ANTIPYRINE [Concomitant]
     Active Substance: ANTIPYRINE
  8. ATENOLOL [Concomitant]
     Active Substance: ATENOLOL
  9. ATORVASTATIN [Concomitant]
     Active Substance: ATORVASTATIN
  10. BREO ELLIPTA [Concomitant]
     Active Substance: FLUTICASONE FUROATE\VILANTEROL TRIFENATATE
  11. BYSTOLIC [Concomitant]
     Active Substance: NEBIVOLOL HYDROCHLORIDE
  12. CARVEDILOL [Concomitant]
     Active Substance: CARVEDILOL
  13. CEFADROXIL [Concomitant]
     Active Substance: CEFADROXIL
  14. CHLORHEXIDINE [Concomitant]
     Active Substance: CHLORHEXIDINE
  15. CEPHALEXIN HYDROCHLORIDE [Concomitant]
     Active Substance: CEPHALEXIN HYDROCHLORIDE
  16. CHLORTHALIDONE [Concomitant]
     Active Substance: CHLORTHALIDONE
  17. CLINDAMYCIN [Concomitant]
     Active Substance: CLINDAMYCIN
  18. CLONAZEPAM [Concomitant]
     Active Substance: CLONAZEPAM
  19. CLONIDINE [Concomitant]
     Active Substance: CLONIDINE
  20. CLOPIDOGREL [Concomitant]
     Active Substance: CLOPIDOGREL BISULFATE
  21. CREON [Concomitant]
     Active Substance: PANCRELIPASE AMYLASE\PANCRELIPASE LIPASE\PANCRELIPASE PROTEASE
  22. CYCLOBENZAPRINE [Concomitant]
     Active Substance: CYCLOBENZAPRINE
  23. CYMBALTA [Concomitant]
     Active Substance: DULOXETINE HYDROCHLORIDE
  24. DIAZEPAM [Concomitant]
     Active Substance: DIAZEPAM
  25. DICLOXACILLIN [Concomitant]
     Active Substance: DICLOXACILLIN
  26. DICYCLOMINE HYDROCHLORIDE [Concomitant]
     Active Substance: DICYCLOMINE HYDROCHLORIDE
  27. DIPHENHYDRAMINE [Concomitant]
     Active Substance: DIPHENHYDRAMINE
  28. DOC-Q-LAX [Concomitant]
  29. DUCODYL [Concomitant]
  30. DULOXETINE [Concomitant]
     Active Substance: DULOXETINE
  31. GLYCERIN [Concomitant]
     Active Substance: GLYCERIN
  32. ENOXAPARIN [Concomitant]
     Active Substance: ENOXAPARIN
  33. FAMOTIDINE [Concomitant]
     Active Substance: FAMOTIDINE
  34. FINASTERIDE [Concomitant]
     Active Substance: FINASTERIDE
  35. FLOMAX [Concomitant]
     Active Substance: TAMSULOSIN HYDROCHLORIDE
  36. FLOVENT [Concomitant]
     Active Substance: FLUTICASONE PROPIONATE
  37. FLUTICASONE [Concomitant]
     Active Substance: FLUTICASONE
  38. CYANOCOBALAMIN\FOLIC ACID\PYRIDOXINE HYDROCHLORIDE [Concomitant]
     Active Substance: CYANOCOBALAMIN\FOLIC ACID\PYRIDOXINE HYDROCHLORIDE
  39. FUROSEMIDE [Concomitant]
     Active Substance: FUROSEMIDE
  40. GABAPENTIN [Concomitant]
     Active Substance: GABAPENTIN
  41. GAVILYTE N [Concomitant]
  42. HIBICLENS [Concomitant]
     Active Substance: CHLORHEXIDINE GLUCONATE
  43. HYDROCHLOROTHIAZIDE [Concomitant]
     Active Substance: HYDROCHLOROTHIAZIDE
  44. HYDROCODONE [Concomitant]
     Active Substance: HYDROCODONE
  45. HYDROCODONE BITARTRATE AND ACETAMINOPHEN [Concomitant]
     Active Substance: ACETAMINOPHEN\HYDROCODONE BITARTRATE
  46. IBUPROFEN [Concomitant]
     Active Substance: IBUPROFEN
  47. INCRUSE ELLIPTA [Concomitant]
     Active Substance: UMECLIDINIUM BROMIDE
  48. KETOROLAC [Concomitant]
     Active Substance: KETOROLAC TROMETHAMINE
  49. LIDOCAINE [Concomitant]
     Active Substance: LIDOCAINE
  50. LISINOPRIL [Concomitant]
     Active Substance: LISINOPRIL
  51. LOPERAMIDE [Concomitant]
     Active Substance: LOPERAMIDE
  52. LORAZEPAM [Concomitant]
     Active Substance: LORAZEPAM
  53. LOTEMAX [Concomitant]
     Active Substance: LOTEPREDNOL ETABONATE
  54. MAGNESIUM [Concomitant]
     Active Substance: MAGNESIUM
  55. MAGNESIUM CITRATE [Concomitant]
     Active Substance: MAGNESIUM CITRATE
  56. MAGOX [Concomitant]
  57. MAVYRET [Concomitant]
     Active Substance: GLECAPREVIR\PIBRENTASVIR
  58. MECLIZINE HYDROCHLORIDE [Concomitant]
     Active Substance: MECLIZINE HYDROCHLORIDE
  59. MELOXICAM [Concomitant]
     Active Substance: MELOXICAM
  60. METFORMIN [Concomitant]
     Active Substance: METFORMIN HYDROCHLORIDE
  61. METHYLPREDNISOLONE [Concomitant]
     Active Substance: METHYLPREDNISOLONE
  62. METRONIDAZOLE [Concomitant]
     Active Substance: METRONIDAZOLE
  63. MONTELUKAST [Concomitant]
     Active Substance: MONTELUKAST SODIUM
  64. MUPIROCIN [Concomitant]
     Active Substance: MUPIROCIN
  65. NABUMETONE [Concomitant]
     Active Substance: NABUMETONE
  66. NAPROXEN [Concomitant]
     Active Substance: NAPROXEN
  67. NEXIUM I.V. [Concomitant]
     Active Substance: ESOMEPRAZOLE SODIUM
  68. NIFEDIPINE [Concomitant]
     Active Substance: NIFEDIPINE
  69. NITROSTAT [Concomitant]
     Active Substance: NITROGLYCERIN
  70. NORCO [Concomitant]
     Active Substance: ACETAMINOPHEN\HYDROCODONE BITARTRATE
  71. NYSTATIN [Concomitant]
     Active Substance: NYSTATIN
  72. OFLOXACIN [Concomitant]
     Active Substance: OFLOXACIN
  73. OMEPRAZOLE [Concomitant]
     Active Substance: OMEPRAZOLE
  74. ONDANSETRON [Concomitant]
     Active Substance: ONDANSETRON
  75. HIGH DENSITY POLYETHYLENE [Concomitant]
     Active Substance: HIGH DENSITY POLYETHYLENE
  76. POLYETHYLENE GLYCOL\PROPYLENE GLYCOL [Concomitant]
     Active Substance: POLYETHYLENE GLYCOL\PROPYLENE GLYCOL
  77. POTASSIUM [Concomitant]
     Active Substance: POTASSIUM
  78. PREDNISONE [Concomitant]
     Active Substance: PREDNISONE
  79. PROAIR HFA [Concomitant]
     Active Substance: ALBUTEROL SULFATE
  80. PROCHLORPERAZINE [Concomitant]
     Active Substance: PROCHLORPERAZINE
  81. PROMETHAZINE [Concomitant]
     Active Substance: PROMETHAZINE HYDROCHLORIDE
  82. QVAR [Concomitant]
     Active Substance: BECLOMETHASONE DIPROPIONATE
  83. RANITIDINE [Concomitant]
     Active Substance: RANITIDINE
  84. SENEXON [ASCORBIC ACID;BETACAROTENE;TOCOPHEROL] [Concomitant]
  85. SENNA LEAF [Concomitant]
     Active Substance: SENNA LEAF
  86. SERTRALINE [Concomitant]
     Active Substance: SERTRALINE HYDROCHLORIDE
  87. SIMVASTATIN [Concomitant]
     Active Substance: SIMVASTATIN
  88. SINGULAIR [Concomitant]
     Active Substance: MONTELUKAST SODIUM
  89. SMOOTH LAX [Concomitant]
     Active Substance: POLYETHYLENE GLYCOL 3350
  90. SPIRIVA [Concomitant]
     Active Substance: TIOTROPIUM BROMIDE MONOHYDRATE
  91. SPIRONOLACTONE [Concomitant]
     Active Substance: SPIRONOLACTONE
  92. SUCRALFATE [Concomitant]
     Active Substance: SUCRALFATE
  93. SULFAMETHOXAZOLE [Concomitant]
     Active Substance: SULFAMETHOXAZOLE
  94. SUPREP BOWEL PREP [Concomitant]
     Active Substance: MAGNESIUM SULFATE\POTASSIUM SULFATE\SODIUM SULFATE
  95. SYMBICORT [Concomitant]
     Active Substance: BUDESONIDE\FORMOTEROL FUMARATE DIHYDRATE
  96. TAMSULOSIN [Concomitant]
     Active Substance: TAMSULOSIN
  97. TIZANIDINE [Concomitant]
     Active Substance: TIZANIDINE
  98. TRAMADOL [Concomitant]
     Active Substance: TRAMADOL
  99. VENTOLIN [Concomitant]
     Active Substance: ALBUTEROL SULFATE
  100. VITAMIN D NOS [Concomitant]
     Active Substance: VITAMIN D NOS
  101. DICLOFENAC SODIUM [Concomitant]
     Active Substance: DICLOFENAC SODIUM

REACTIONS (7)
  - Acute kidney injury [Recovered/Resolved]
  - Emotional distress [Not Recovered/Not Resolved]
  - Anhedonia [Not Recovered/Not Resolved]
  - Anxiety [Not Recovered/Not Resolved]
  - Pain [Not Recovered/Not Resolved]
  - Anaemia [Not Recovered/Not Resolved]
  - Fatigue [Unknown]

NARRATIVE: CASE EVENT DATE: 20110101
